FAERS Safety Report 11404127 (Version 1)
Quarter: 2015Q3

REPORT INFORMATION
  Report Type: Spontaneous
  Country: US (occurrence: None)
  Receive Date: 20150820
  Receipt Date: 20150820
  Transmission Date: 20151125
  Serious: No
  Sender: FDA-Public Use
  Company Number: None

PATIENT
  Age: 54 Year
  Sex: Female
  Weight: 108.86 kg

DRUGS (4)
  1. IBUPROFEN. [Concomitant]
     Active Substance: IBUPROFEN
  2. PRISTIQ EXTENDED-RELEASE [Suspect]
     Active Substance: DESVENLAFAXINE SUCCINATE
     Indication: PREMENSTRUAL DYSPHORIC DISORDER
     Dosage: 1 PILL
     Route: 048
     Dates: start: 20080831, end: 20150819
  3. SODIUM ASCORBATE [Concomitant]
     Active Substance: SODIUM ASCORBATE
  4. ORGANIC JUICING [Concomitant]

REACTIONS (2)
  - Vertigo [None]
  - Paraesthesia [None]

NARRATIVE: CASE EVENT DATE: 20150819
